FAERS Safety Report 5668189-4 (Version None)
Quarter: 2008Q1

REPORT INFORMATION
  Report Type: 
  Country: None (occurrence: None)
  Receive Date: 20080315
  Receipt Date: 20080218
  Transmission Date: 20080703
  Serious: No
  Sender: FDA-Public Use
  Company Number: US-ABBOTT-08P-163-0438946-00

PATIENT
  Sex: Female
  Weight: 68.1 kg

DRUGS (5)
  1. HUMIRA [Suspect]
     Indication: PSORIASIS
     Route: 058
     Dates: start: 20080215, end: 20080215
  2. HUMIRA [Suspect]
     Route: 058
     Dates: start: 20080223, end: 20080223
  3. HUMIRA [Suspect]
     Route: 058
     Dates: start: 20080223
  4. ADVIL [Concomitant]
     Indication: PAIN
     Route: 048
  5. FLUOXETINE HYDROCHLORIDE [Concomitant]
     Indication: DRUG USE FOR UNKNOWN INDICATION
     Route: 048

REACTIONS (1)
  - INJECTION SITE BRUISING [None]
